FAERS Safety Report 8549992-X (Version None)
Quarter: 2012Q3

REPORT INFORMATION
  Report Type: 
  Country: None (occurrence: None)
  Receive Date: 20120730
  Receipt Date: 20120719
  Transmission Date: 20120928
  Serious: Yes (Other)
  Sender: FDA-Public Use
  Company Number: US-ASTRAZENECA-2012SE51197

PATIENT
  Age: 41 Year
  Sex: Male

DRUGS (2)
  1. PSYCHOTIC MEDICATION [Concomitant]
     Indication: PSYCHOTIC DISORDER
  2. CRESTOR [Suspect]
     Route: 048

REACTIONS (1)
  - RENAL FAILURE [None]
